FAERS Safety Report 8326248-1 (Version None)
Quarter: 2012Q2

REPORT INFORMATION
  Report Type: 
  Country: None (occurrence: None)
  Receive Date: 20120427
  Receipt Date: 20120416
  Transmission Date: 20120825
  Serious: Yes (Other)
  Sender: FDA-Public Use
  Company Number: 1268384

PATIENT
  Age: 2 Year
  Sex: Male
  Weight: 12 kg

DRUGS (6)
  1. FENTANYL CITRATE [Concomitant]
  2. VECURONIUM BROMIDE [Concomitant]
  3. PRECEDEX [Suspect]
     Indication: SEDATION
     Dosage: 0.75 MCG/KG, 0.75 MCG/KG, 0.7 MCG/KG/HR, 0.7 MCG/KG/HR
     Route: 041
  4. METHADONE HCL [Concomitant]
  5. DIAZEPAM [Concomitant]
  6. MIDAZOLAM [Concomitant]

REACTIONS (5)
  - DRUG WITHDRAWAL SYNDROME [None]
  - AGITATION [None]
  - COMMUNICATION DISORDER [None]
  - OFF LABEL USE [None]
  - STARING [None]
